FAERS Safety Report 19509826 (Version 1)
Quarter: 2021Q3

REPORT INFORMATION
  Report Type: Spontaneous
  Country: FR (occurrence: FR)
  Receive Date: 20210708
  Receipt Date: 20210708
  Transmission Date: 20211014
  Serious: Yes (Hospitalization, Other)
  Sender: FDA-Public Use
  Company Number: FR-FERRINGPH-2021FE04359

PATIENT
  Age: 12 Year
  Sex: Male
  Weight: 57 kg

DRUGS (2)
  1. TEGRETOL [Interacting]
     Active Substance: CARBAMAZEPINE
     Indication: EPILEPSY
     Dosage: 200 MG IN THE MORNING AND IN THE EVENING
     Route: 048
     Dates: start: 2020
  2. MINIRINMELT [Suspect]
     Active Substance: DESMOPRESSIN ACETATE
     Indication: ENURESIS
     Dosage: 120 MCG ONCE DAILY IN THE EVENING
     Route: 048
     Dates: start: 20210621, end: 20210623

REACTIONS (1)
  - Epilepsy [Unknown]

NARRATIVE: CASE EVENT DATE: 20210624
